FAERS Safety Report 9680700 (Version 1)
Quarter: 2013Q4

REPORT INFORMATION
  Report Type: Spontaneous
  Country: US (occurrence: None)
  Receive Date: 20131108
  Receipt Date: 20131108
  Transmission Date: 20140711
  Serious: Yes (Death)
  Sender: FDA-Public Use
  Company Number: None

PATIENT
  Age: 80 Year
  Sex: Male

DRUGS (1)
  1. LETAIRIS [Suspect]
     Indication: PULMONARY HYPERTENSION
     Dosage: BY MOUTH
     Route: 048
     Dates: start: 20131002, end: 20131007

REACTIONS (5)
  - Weight increased [None]
  - Fluid overload [None]
  - Somnolence [None]
  - Respiratory failure [None]
  - Cardiac failure congestive [None]
